FAERS Safety Report 4692230-9 (Version None)
Quarter: 2005Q2

REPORT INFORMATION
  Report Type: 
  Country: None (occurrence: None)
  Receive Date: 20050614
  Receipt Date: 20050607
  Transmission Date: 20051028
  Serious: Yes (Death)
  Sender: FDA-Public Use
  Company Number: 2005AL002180

PATIENT
  Age: 32 Year
  Sex: Male

DRUGS (5)
  1. SERAX [Suspect]
     Dosage: 110 MG;QD;PO
     Route: 048
     Dates: end: 20040317
  2. BEZALIP ({NULL}) [Suspect]
     Dosage: 400 MG;QD;PO
     Route: 048
     Dates: start: 20040101, end: 20040317
  3. GLADEM ({NULL}) [Suspect]
     Dosage: 150MG;QD;PO
     Route: 048
     Dates: start: 20040101, end: 20040317
  4. IVADAL ({NULL}) [Suspect]
     Dosage: 10 MG;QD;PO
     Route: 048
     Dates: start: 20040101, end: 20040317
  5. SOLIAN ({NULL}) [Suspect]
     Dosage: 800 MG;QD;PO
     Route: 048
     Dates: start: 20040101, end: 20040317

REACTIONS (1)
  - COMPLETED SUICIDE [None]
